FAERS Safety Report 26069996 (Version 1)
Quarter: 2025Q4

REPORT INFORMATION
  Report Type: Spontaneous
  Country: US (occurrence: US)
  Receive Date: 20251120
  Receipt Date: 20251120
  Transmission Date: 20260118
  Serious: Yes (Other)
  Sender: CATALYST PHARMA
  Company Number: US-CATALYST PHARMACEUTICALS-US-CATA-25-01194

PATIENT
  Age: 2 Year
  Sex: Male
  Weight: 15.42 kg

DRUGS (8)
  1. AGAMREE [Suspect]
     Active Substance: VAMOROLONE
     Indication: Duchenne muscular dystrophy
     Dosage: 1.8 ML ONCE DAILY
     Route: 048
     Dates: start: 20241017, end: 2024
  2. AGAMREE [Suspect]
     Active Substance: VAMOROLONE
     Dosage: 2 ML DAILY
     Route: 048
     Dates: start: 20241226
  3. MULTIVITAMINS + IRON [Concomitant]
     Indication: Hypovitaminosis
     Dosage: ONCE DAILY
     Route: 065
  4. MULTIVITAMINS + IRON [Concomitant]
     Indication: Bone disorder
  5. MULTIVITAMINS + IRON [Concomitant]
     Indication: Prophylaxis
  6. VITAMIN D3 [Concomitant]
     Active Substance: CHOLECALCIFEROL
     Indication: Bone disorder
     Dosage: 25 MCG ONCE DAILY
     Route: 065
  7. VITAMIN D3 [Concomitant]
     Active Substance: CHOLECALCIFEROL
     Indication: Prophylaxis
  8. EXONDYS 51 [Concomitant]
     Active Substance: ETEPLIRSEN
     Indication: Duchenne muscular dystrophy
     Dosage: ONCE WEEK
     Route: 042

REACTIONS (6)
  - Growth retardation [Not Recovered/Not Resolved]
  - Behaviour disorder [Not Recovered/Not Resolved]
  - Aggression [Not Recovered/Not Resolved]
  - Increased appetite [Not Recovered/Not Resolved]
  - Cushingoid [Not Recovered/Not Resolved]
  - Hair growth abnormal [Not Recovered/Not Resolved]

NARRATIVE: CASE EVENT DATE: 20241017
